FAERS Safety Report 7582418-1 (Version None)
Quarter: 2011Q2

REPORT INFORMATION
  Report Type: 
  Country: None (occurrence: None)
  Receive Date: 20110623
  Receipt Date: 20110610
  Transmission Date: 20111010
  Serious: Yes (Other)
  Sender: FDA-Public Use
  Company Number: 1000021652

PATIENT
  Age: 42 Year
  Sex: Male
  Weight: 75 kg

DRUGS (3)
  1. NORTRILEN (NORTRIPTYLINE HYDROCHLORIDE) (TABLETS) [Suspect]
     Dosage: 2500 MG, ONCE, ORAL
     Route: 048
     Dates: start: 20110610, end: 20110610
  2. ESCITALOPRAM [Suspect]
     Dosage: 1000 MG, ONCE, ORAL
     Route: 048
     Dates: start: 20110610, end: 20110610
  3. QUILONUM (LITHIUM CARBONATE) (TABLETS) [Suspect]
     Dosage: 45000 MG, ONCE, ORAL;
     Route: 048
     Dates: start: 20110610, end: 20110610

REACTIONS (3)
  - SUICIDE ATTEMPT [None]
  - MULTIPLE DRUG OVERDOSE INTENTIONAL [None]
  - UNEVALUABLE EVENT [None]
